FAERS Safety Report 7486720 (Version 2)
Quarter: 2020Q3

REPORT INFORMATION
  Report Type: Report from Study
  Country: US (occurrence: US)
  Receive Date: 20100719
  Receipt Date: 20100825
  Transmission Date: 20201105
  Serious: Yes (Other)
  Sender: FDA-Public Use
  Company Number: US-WYE-H16060110

PATIENT
  Age: 48 Year
  Sex: Male
  Weight: 117 kg

DRUGS (5)
  1. INTERFERON ALFA NOS [Suspect]
     Active Substance: INTERFERON ALFA-2A OR INTERFERON ALFA-2B
     Indication: METASTATIC RENAL CELL CARCINOMA
     Dosage: 6 MU THREE TIMES PER WEEK
     Route: 058
     Dates: start: 20091006, end: 20100707
  2. AVASTIN [Suspect]
     Active Substance: BEVACIZUMAB
     Indication: METASTATIC RENAL CELL CARCINOMA
     Route: 042
     Dates: start: 20091006, end: 20100707
  3. INSULIN ASPART [Concomitant]
     Active Substance: INSULIN ASPART
     Indication: DIABETES MELLITUS
     Dosage: SLIDING SCALE PRN
     Route: 065
     Dates: start: 200908
  4. INSULIN GLARGINE [Concomitant]
     Active Substance: INSULIN GLARGINE
     Indication: DIABETES MELLITUS
     Dosage: 20 UNITS; FREQUENCY NOT PROVIDED
     Route: 065
     Dates: start: 200908
  5. LISINOPRIL. [Concomitant]
     Active Substance: LISINOPRIL
     Indication: HYPERTENSION
     Route: 048
     Dates: start: 20091103

REACTIONS (1)
  - Nephrotic syndrome [Not Recovered/Not Resolved]

NARRATIVE: CASE EVENT DATE: 20100707
